FAERS Safety Report 6248864-3 (Version None)
Quarter: 2009Q2

REPORT INFORMATION
  Report Type: 
  Country: None (occurrence: None)
  Receive Date: 20090629
  Receipt Date: 20090505
  Transmission Date: 20091009
  Serious: No
  Sender: FDA-Public Use
  Company Number: US-TYCO HEALTHCARE/MALLINCKRODT-T200901015

PATIENT

DRUGS (2)
  1. TECHNETIUM TC 99M SESTAMIBI [Suspect]
     Dosage: UNK, SINGLE
     Dates: start: 20090430, end: 20090430
  2. TECHNETIUM TC 99M GENERATOR [Concomitant]
     Dosage: UNK, SINGLE
     Dates: start: 20090430, end: 20090430

REACTIONS (1)
  - DRUG INEFFECTIVE [None]
